FAERS Safety Report 6901738-4 (Version None)
Quarter: 2010Q3

REPORT INFORMATION
  Report Type: 
  Country: None (occurrence: None)
  Receive Date: 20100803
  Receipt Date: 20080307
  Transmission Date: 20110219
  Serious: No
  Sender: FDA-Public Use
  Company Number: US-PFIZER INC-2008022036

PATIENT
  Sex: Female
  Weight: 62.7 kg

DRUGS (8)
  1. LYRICA [Suspect]
     Indication: INTERVERTEBRAL DISC DISORDER
     Route: 048
     Dates: start: 20080307
  2. CLINORIL [Concomitant]
  3. ACCUPRIL [Concomitant]
  4. VYTORIN [Concomitant]
  5. ACETYLSALICYLIC ACID SRT [Concomitant]
  6. CLONIDINE [Concomitant]
  7. ZOLOFT [Concomitant]
  8. ALPRAZOLAM [Concomitant]

REACTIONS (2)
  - DIZZINESS [None]
  - VISION BLURRED [None]
